FAERS Safety Report 15660358 (Version 7)
Quarter: 2019Q4

REPORT INFORMATION
  Report Type: Report from Study
  Country: US (occurrence: US)
  Receive Date: 20181127
  Receipt Date: 20191011
  Transmission Date: 20200122
  Serious: Yes (Congenital Anomaly, Other)
  Sender: FDA-Public Use
  Company Number: US-GLAXOSMITHKLINE-US2018GSK213601

PATIENT
  Age: 24 Day
  Sex: Male

DRUGS (1)
  1. BELIMUMAB [Suspect]
     Active Substance: BELIMUMAB
     Indication: SYSTEMIC LUPUS ERYTHEMATOSUS
     Dosage: 10 MG/KG, UNK
     Route: 064
     Dates: end: 20180119

REACTIONS (4)
  - Foetal exposure during pregnancy [Unknown]
  - Musculoskeletal disorder [Not Recovered/Not Resolved]
  - Dacryostenosis congenital [Recovered/Resolved]
  - Penile adhesion [Not Recovered/Not Resolved]

NARRATIVE: CASE EVENT DATE: 20181016
